FAERS Safety Report 10580055 (Version 3)
Quarter: 2014Q4

REPORT INFORMATION
  Report Type: Spontaneous
  Country: JP (occurrence: JP)
  Receive Date: 20141112
  Receipt Date: 20141117
  Transmission Date: 20150529
  Serious: Yes (Hospitalization, Other)
  Sender: FDA-Public Use
  Company Number: JP-PFIZER INC-2014190237

PATIENT
  Age: 75 Year
  Sex: Female
  Weight: 43 kg

DRUGS (11)
  1. OLMETEC [Suspect]
     Active Substance: OLMESARTAN MEDOXOMIL
     Indication: HYPERTENSION
     Dosage: 40 MG, DAILY
     Route: 048
  2. CILNIDIPINE [Suspect]
     Active Substance: CILNIDIPINE
     Indication: HYPERTENSION
     Dosage: 20 MG, DAILY
     Route: 048
  3. CILNIDIPINE [Suspect]
     Active Substance: CILNIDIPINE
     Dosage: 10 MG, DAILY
  4. ATENOLOL. [Suspect]
     Active Substance: ATENOLOL
     Dosage: 25 MG, DAILY
  5. TRICHLORMETHIAZIDE [Suspect]
     Active Substance: TRICHLORMETHIAZIDE
     Indication: HYPERTENSION
     Dosage: 1 MG, DAILY
  6. DOXAZOSIN MESILATE [Suspect]
     Active Substance: DOXAZOSIN MESYLATE
     Indication: HYPERTENSION
     Dosage: 2 MG, DAILY
  7. ATENOLOL. [Suspect]
     Active Substance: ATENOLOL
     Indication: HYPERTENSION
     Dosage: 25 MG, DAILY
     Route: 048
  8. NIFEDIPINE. [Suspect]
     Active Substance: NIFEDIPINE
     Indication: HYPERTENSION
     Dosage: 60 MG, DAILY
  9. ATENOLOL. [Suspect]
     Active Substance: ATENOLOL
     Dosage: 50 MG, DAILY
  10. EPLERENONE. [Suspect]
     Active Substance: EPLERENONE
     Indication: HYPERTENSION
     Dosage: 50 MG, DAILY
  11. NIFEDIPINE. [Suspect]
     Active Substance: NIFEDIPINE
     Dosage: 40 MG, DAILY

REACTIONS (2)
  - Renal artery stenosis [Recovering/Resolving]
  - Blood pressure inadequately controlled [Unknown]

NARRATIVE: CASE EVENT DATE: 201206
